FAERS Safety Report 9196482 (Version 1)
Quarter: 2013Q1

REPORT INFORMATION
  Report Type: Spontaneous
  Country: US (occurrence: None)
  Receive Date: 20120709
  Receipt Date: 20120709
  Transmission Date: 20140127
  Serious: Yes (Other)
  Sender: FDA-Public Use
  Company Number: PHHY2011US51425

PATIENT
  Age: 74 Year
  Sex: Female

DRUGS (11)
  1. GLEEVEC [Suspect]
     Indication: GASTROINTESTINAL STROMAL TUMOUR
     Route: 048
     Dates: start: 200504, end: 20110107
  2. HYDROCODONE [Concomitant]
  3. ALBUTEROL + IPRATROPIUM [Concomitant]
  4. OMERPRAZOLE [Concomitant]
  5. AMLODIPINE [Concomitant]
  6. SIMVASTATIN [Concomitant]
  7. IBUPROFEN [Concomitant]
  8. SODIUM CHLORIDE [Concomitant]
  9. IRON DEXTRAN [Concomitant]
  10. ROSIGLITAZONE [Concomitant]
  11. LEVOTHYROXINE SODIUM [Concomitant]

REACTIONS (5)
  - Renal impairment [None]
  - Gastrointestinal disorder [None]
  - Vomiting [None]
  - Abdominal pain [None]
  - Nausea [None]
